FAERS Safety Report 6330948-2 (Version None)
Quarter: 2009Q3

REPORT INFORMATION
  Report Type: 
  Country: None (occurrence: None)
  Receive Date: 20090827
  Receipt Date: 20090820
  Transmission Date: 20100115
  Serious: Yes (Other)
  Sender: FDA-Public Use
  Company Number: US-B.I. PHARMACEUTICALS,INC./RIDGEFIELD-2009-DE-05558GD

PATIENT
  Age: 52 Year
  Sex: Male

DRUGS (7)
  1. CLONIDINE [Suspect]
     Indication: COMPLEX REGIONAL PAIN SYNDROME
     Dosage: 81.12 MCG
     Route: 037
  2. CLONIDINE [Suspect]
     Dosage: 105.46 MCG
     Route: 037
  3. CLONIDINE [Suspect]
     Dosage: 141.34 MCG
     Route: 037
  4. ZICONOTIDE [Suspect]
     Indication: COMPLEX REGIONAL PAIN SYNDROME
     Dosage: 6.76 MCG
     Route: 037
  5. ZICONOTIDE [Suspect]
     Dosage: 8.78 MCG
     Route: 037
  6. ZICONOTIDE [Suspect]
     Dosage: 11.78 MCG
     Route: 037
  7. HYDROMORPHONE HCL [Suspect]
     Indication: COMPLEX REGIONAL PAIN SYNDROME
     Dosage: 133 MCG
     Route: 037

REACTIONS (11)
  - ABDOMINAL PAIN LOWER [None]
  - AGITATION [None]
  - ANXIETY [None]
  - APHASIA [None]
  - DYSARTHRIA [None]
  - DYSGEUSIA [None]
  - FEELING OF BODY TEMPERATURE CHANGE [None]
  - HALLUCINATION, OLFACTORY [None]
  - PAIN [None]
  - SENSITIVITY OF TEETH [None]
  - URINARY RETENTION [None]
